APPROVED DRUG PRODUCT: FESOTERODINE FUMARATE
Active Ingredient: FESOTERODINE FUMARATE
Strength: 8MG
Dosage Form/Route: TABLET, EXTENDED RELEASE;ORAL
Application: A204827 | Product #002 | TE Code: AB
Applicant: ALKEM LABORATORIES LTD
Approved: Dec 10, 2015 | RLD: No | RS: No | Type: RX